FAERS Safety Report 19505208 (Version 1)
Quarter: 2021Q3

REPORT INFORMATION
  Report Type: Spontaneous
  Country: US (occurrence: US)
  Receive Date: 20210707
  Receipt Date: 20210707
  Transmission Date: 20211014
  Serious: Yes (Other)
  Sender: FDA-Public Use
  Company Number: None

PATIENT
  Age: 29 Year
  Sex: Female
  Weight: 46.22 kg

DRUGS (4)
  1. MIDAZOLAM. [Suspect]
     Active Substance: MIDAZOLAM
     Indication: COLONOSCOPY
     Route: 042
     Dates: start: 20210506, end: 20210506
  2. FENTANYL. [Suspect]
     Active Substance: FENTANYL
     Indication: COLONOSCOPY
     Dates: start: 20210506, end: 20210506
  3. MIDAZOLAM. [Suspect]
     Active Substance: MIDAZOLAM
     Indication: ENDOSCOPY
     Route: 042
     Dates: start: 20210506, end: 20210506
  4. FENTANYL. [Suspect]
     Active Substance: FENTANYL
     Indication: ENDOSCOPY
     Dates: start: 20210506, end: 20210506

REACTIONS (2)
  - Therapeutic product effect decreased [None]
  - Crying [None]

NARRATIVE: CASE EVENT DATE: 20210506
